APPROVED DRUG PRODUCT: FENTANYL CITRATE
Active Ingredient: FENTANYL CITRATE
Strength: EQ 0.05MG BASE/ML
Dosage Form/Route: INJECTABLE;INJECTION
Application: N019115 | Product #001 | TE Code: AP
Applicant: HOSPIRA INC
Approved: Jan 12, 1985 | RLD: No | RS: No | Type: RX